FAERS Safety Report 20157237 (Version 4)
Quarter: 2022Q1

REPORT INFORMATION
  Report Type: Spontaneous
  Country: CA (occurrence: CA)
  Receive Date: 20211207
  Receipt Date: 20220228
  Transmission Date: 20220423
  Serious: Yes (Death)
  Sender: FDA-Public Use
  Company Number: CA-CELGENE-CAN-20211201515

PATIENT
  Age: 63 Year
  Sex: Male
  Weight: 61.3 kg

DRUGS (12)
  1. AZACITIDINE [Suspect]
     Active Substance: AZACITIDINE
     Indication: Myelodysplastic syndrome
     Dosage: 75 MILLIGRAM/SQ. METER
     Route: 058
     Dates: start: 20210816, end: 20211109
  2. VENETOCLAX [Suspect]
     Active Substance: VENETOCLAX
     Indication: Myelodysplastic syndrome
     Dosage: 400 MILLIGRAM
     Route: 048
     Dates: start: 20210816, end: 20211114
  3. ENTRESTO [Concomitant]
     Active Substance: SACUBITRIL\VALSARTAN
     Indication: Coronary artery disease
     Dosage: UNIT DOSE 13+12 MG
     Route: 048
     Dates: start: 20210726
  4. ATORVASTATIN [Concomitant]
     Active Substance: ATORVASTATIN
     Indication: Dyslipidaemia
     Dosage: 20 MILLIGRAM
     Route: 048
     Dates: start: 20190501
  5. BISOPROLOL [Concomitant]
     Active Substance: BISOPROLOL
     Indication: Coronary artery disease
     Dosage: 5 MILLIGRAM
     Route: 048
     Dates: start: 20140707
  6. SYNTHROID [Concomitant]
     Active Substance: LEVOTHYROXINE SODIUM
     Indication: Hypothyroidism
     Dosage: 125 MICROGRAM
     Route: 048
     Dates: start: 20110107
  7. ENTYVIO [Concomitant]
     Active Substance: VEDOLIZUMAB
     Indication: Colitis ulcerative
     Dosage: 5.3571 MILLIGRAM
     Route: 041
     Dates: start: 20210617
  8. FLOVENT HFA [Concomitant]
     Active Substance: FLUTICASONE PROPIONATE
     Indication: Chronic obstructive pulmonary disease
     Dosage: 500 MICROGRAM
     Route: 055
     Dates: start: 20210307
  9. Canesten + CORTATE [Concomitant]
     Indication: Pruritus
     Route: 061
     Dates: start: 20210208
  10. ALBUTEROL [Concomitant]
     Active Substance: ALBUTEROL
     Indication: Chronic obstructive pulmonary disease
     Route: 055
     Dates: start: 20170307
  11. LIDOCAIN+SUCRALFATE+NYSTATIN [Concomitant]
     Indication: Mucosal inflammation
     Dosage: 15 MILLILITER
     Route: 002
     Dates: start: 20210907
  12. IVABRADINE [Concomitant]
     Active Substance: IVABRADINE
     Indication: Coronary artery disease
     Dosage: 15 MILLIGRAM
     Route: 002
     Dates: start: 20210825

REACTIONS (1)
  - Arrhythmia [Fatal]

NARRATIVE: CASE EVENT DATE: 20211126
